FAERS Safety Report 21274294 (Version 1)
Quarter: 2022Q3

REPORT INFORMATION
  Report Type: Report from Study
  Country: US (occurrence: US)
  Receive Date: 20220831
  Receipt Date: 20220831
  Transmission Date: 20221027
  Serious: Yes (Other)
  Sender: FDA-Public Use
  Company Number: US-ABBVIE-22K-163-4520324-00

PATIENT
  Age: 46 Year
  Sex: Female

DRUGS (2)
  1. IBRUTINIB [Suspect]
     Active Substance: IBRUTINIB
     Indication: Chronic lymphocytic leukaemia
     Route: 048
  2. IBRUTINIB [Suspect]
     Active Substance: IBRUTINIB
     Route: 048
     Dates: end: 20220815

REACTIONS (4)
  - Adrenalectomy [Unknown]
  - Lymphadenopathy [Not Recovered/Not Resolved]
  - Thyroid mass [Unknown]
  - Neck pain [Recovering/Resolving]

NARRATIVE: CASE EVENT DATE: 20220801
